FAERS Safety Report 4992977-0 (Version None)
Quarter: 2006Q2

REPORT INFORMATION
  Report Type: 
  Country: None (occurrence: None)
  Receive Date: 20060504
  Receipt Date: 20050607
  Transmission Date: 20061013
  Serious: Yes (Hospitalization)
  Sender: FDA-Public Use
  Company Number: US-MERCK-0506USA01097

PATIENT
  Age: 62 Year
  Sex: Male
  Weight: 107 kg

DRUGS (4)
  1. ASPIRIN [Concomitant]
     Route: 065
  2. VITAMINS (UNSPECIFIED) [Concomitant]
     Route: 065
  3. VIOXX [Suspect]
     Indication: PAIN IN EXTREMITY
     Route: 048
     Dates: start: 19990501, end: 20040901
  4. VIOXX [Suspect]
     Indication: BURSITIS
     Route: 048
     Dates: start: 19990501, end: 20040901

REACTIONS (11)
  - ARTHRALGIA [None]
  - BURSITIS [None]
  - CEREBROVASCULAR ACCIDENT [None]
  - GASTROOESOPHAGEAL REFLUX DISEASE [None]
  - OPHTHALMOPLEGIA [None]
  - PAIN IN EXTREMITY [None]
  - PARAESTHESIA [None]
  - PARKINSONISM [None]
  - POLLAKIURIA [None]
  - SYNCOPE [None]
  - TINNITUS [None]
